FAERS Safety Report 11084878 (Version 2)
Quarter: 2015Q2

REPORT INFORMATION
  Report Type: Spontaneous
  Country: US (occurrence: US)
  Receive Date: 20150503
  Receipt Date: 20150525
  Transmission Date: 20150821
  Serious: No
  Sender: FDA-Public Use
  Company Number: US-JNJFOC-20140212798

PATIENT
  Age: 65 Year
  Sex: Male
  Weight: 68.04 kg

DRUGS (2)
  1. XARELTO [Suspect]
     Active Substance: RIVAROXABAN
     Indication: DEEP VEIN THROMBOSIS
     Route: 048
     Dates: start: 20131231, end: 2014
  2. XARELTO [Suspect]
     Active Substance: RIVAROXABAN
     Indication: DEEP VEIN THROMBOSIS
     Route: 048
     Dates: start: 2014, end: 20140218

REACTIONS (6)
  - Respiratory disorder [Recovered/Resolved]
  - Productive cough [Recovered/Resolved]
  - Pain [Unknown]
  - Respiratory tract congestion [Recovered/Resolved]
  - Coagulopathy [Not Recovered/Not Resolved]
  - Inappropriate schedule of drug administration [Unknown]

NARRATIVE: CASE EVENT DATE: 20131231
